FAERS Safety Report 11681364 (Version 1)
Quarter: 2015Q4

REPORT INFORMATION
  Report Type: Spontaneous
  Country: US (occurrence: US)
  Receive Date: 20151027
  Receipt Date: 20151027
  Transmission Date: 20160304
  Serious: No
  Sender: FDA-Public Use
  Company Number: US-ELI_LILLY_AND_COMPANY-US201006002052

PATIENT
  Sex: Female

DRUGS (5)
  1. LYRICA [Concomitant]
     Active Substance: PREGABALIN
     Dosage: 200 MG, 3/D
  2. LASIX [Concomitant]
     Active Substance: FUROSEMIDE
     Dosage: 20 MG, DAILY (1/D)
  3. KEPPRA [Concomitant]
     Active Substance: LEVETIRACETAM
     Dosage: 250 MG, 2/D
  4. FORTEO [Suspect]
     Active Substance: TERIPARATIDE
     Indication: OSTEOPOROSIS
     Dosage: 20 UG, DAILY (1/D)
     Dates: start: 200911
  5. ASACOL [Concomitant]
     Active Substance: MESALAMINE
     Dosage: 400 MG, 2/D

REACTIONS (3)
  - Intervertebral disc compression [Not Recovered/Not Resolved]
  - Mobility decreased [Not Recovered/Not Resolved]
  - Spinal column injury [Not Recovered/Not Resolved]

NARRATIVE: CASE EVENT DATE: 2010
